FAERS Safety Report 9917866 (Version 2)
Quarter: 2014Q1

REPORT INFORMATION
  Report Type: Spontaneous
  Country: US (occurrence: US)
  Receive Date: 20140221
  Receipt Date: 20140221
  Transmission Date: 20141002
  Serious: Yes (Disabling)
  Sender: FDA-Public Use
  Company Number: US-GE HEALTHCARE MEDICAL DIAGNOSTICS-OSCN-PR-0805S-0267

PATIENT
  Age: 70 Year
  Sex: Male

DRUGS (8)
  1. OMNISCAN [Suspect]
     Indication: HYPERTENSION
     Route: 042
     Dates: start: 20021224, end: 20021224
  2. OMNISCAN [Suspect]
     Indication: RENAL FAILURE
  3. OMNISCAN [Suspect]
     Indication: RENAL ARTERY STENOSIS
  4. OMNISCAN [Suspect]
     Indication: RENAL ARTERY OCCLUSION
  5. GADOLINIUM (UNSPECIFIED) [Suspect]
     Indication: PRODUCT USED FOR UNKNOWN INDICATION
     Route: 042
     Dates: start: 20001002, end: 20001002
  6. MAGNEVIST [Suspect]
     Indication: HYPERPROLACTINAEMIA
     Route: 042
     Dates: start: 20020604, end: 20020604
  7. MAGNEVIST [Suspect]
     Indication: MYOPATHY
     Route: 042
     Dates: start: 20030124, end: 20030124
  8. AZATHIOPRINE [Concomitant]
     Indication: PRODUCT USED FOR UNKNOWN INDICATION

REACTIONS (1)
  - Nephrogenic systemic fibrosis [Not Recovered/Not Resolved]
